FAERS Safety Report 17282620 (Version 5)
Quarter: 2020Q1

REPORT INFORMATION
  Report Type: Spontaneous
  Country: IL (occurrence: IL)
  Receive Date: 20200117
  Receipt Date: 20200228
  Transmission Date: 20200409
  Serious: Yes (Hospitalization, Other)
  Sender: FDA-Public Use
  Company Number: IL-CELLTRION INC.-2020IL017789

PATIENT

DRUGS (7)
  1. DOXORUBICIN [Suspect]
     Active Substance: DOXORUBICIN
     Dosage: THIRD TREATMENT
     Dates: start: 20191212, end: 20191215
  2. ENDOXAN [CYCLOPHOSPHAMIDE] [Suspect]
     Active Substance: CYCLOPHOSPHAMIDE
     Dosage: THIRD TREATMENT
  3. VINCRISTINE [Suspect]
     Active Substance: VINCRISTINE
     Dosage: THIRD TREATMENT
  4. TRUXIMA [Suspect]
     Active Substance: RITUXIMAB-ABBS
     Indication: DIFFUSE LARGE B-CELL LYMPHOMA
     Dosage: 375 MG/M2, SINGLE DOSE
     Route: 042
     Dates: start: 20191105
  5. VINCRISTINE [Suspect]
     Active Substance: VINCRISTINE
     Indication: DIFFUSE LARGE B-CELL LYMPHOMA
     Dosage: UNK, TWO TREATMENTS
     Route: 065
  6. DOXORUBICIN [Suspect]
     Active Substance: DOXORUBICIN
     Indication: DIFFUSE LARGE B-CELL LYMPHOMA
     Dosage: UNK, TWO TREATMENTS
     Route: 065
  7. ENDOXAN [CYCLOPHOSPHAMIDE] [Suspect]
     Active Substance: CYCLOPHOSPHAMIDE
     Indication: DIFFUSE LARGE B-CELL LYMPHOMA
     Dosage: UNK, TWO TREATMENTS
     Route: 065

REACTIONS (8)
  - Pancytopenia [Recovering/Resolving]
  - Meningitis cryptococcal [Recovered/Resolved]
  - Diarrhoea [Unknown]
  - Diffuse alveolar damage [Unknown]
  - Pneumonitis [Recovered/Resolved]
  - Oxygen saturation decreased [Unknown]
  - Hypertensive emergency [Not Recovered/Not Resolved]
  - Organising pneumonia [Unknown]

NARRATIVE: CASE EVENT DATE: 20191212
